FAERS Safety Report 6030947-4 (Version None)
Quarter: 2009Q1

REPORT INFORMATION
  Report Type: 
  Country: None (occurrence: None)
  Receive Date: 20090106
  Receipt Date: 20081201
  Transmission Date: 20090719
  Serious: Yes (Hospitalization)
  Sender: FDA-Public Use
  Company Number: 08P-261-0494211-00

PATIENT
  Sex: Male

DRUGS (1)
  1. SYNAGIS [Suspect]
     Indication: ANTIVIRAL PROPHYLAXIS
     Route: 058
     Dates: start: 20081124, end: 20081124

REACTIONS (2)
  - CARDIAC FAILURE ACUTE [None]
  - TROPONIN INCREASED [None]
